FAERS Safety Report 8662138 (Version 2)
Quarter: 2012Q4

REPORT INFORMATION
  Report Type: 
  Country: GB (occurrence: GB)
  Receive Date: 20120712
  Receipt Date: 20120906
  Transmission Date: 20130627
  Serious: Yes (Hospitalization)
  Sender: FDA-Public Use
  Company Number: PHFR2012GB003924

PATIENT
  Age: 44 None
  Sex: Male

DRUGS (5)
  1. CLOZARIL [Suspect]
     Indication: SCHIZOPHRENIA
     Dates: start: 20041217, end: 200612
  2. CLOZARIL [Suspect]
     Dates: start: 20120717
  3. ZUCLOPENTHIXOL [Concomitant]
  4. DEPOT [Concomitant]
  5. RISPERIDONE [Concomitant]
     Dosage: 6 mg, Daily

REACTIONS (6)
  - Psoriasis [Unknown]
  - Oedema peripheral [Unknown]
  - Cellulitis [Unknown]
  - Mental impairment [Unknown]
  - White blood cell count decreased [Unknown]
  - Neutrophil count decreased [Unknown]
